FAERS Safety Report 14917593 (Version 4)
Quarter: 2020Q2

REPORT INFORMATION
  Report Type: Spontaneous
  Country: US (occurrence: US)
  Receive Date: 20180521
  Receipt Date: 20200424
  Transmission Date: 20200713
  Serious: Yes (Death, Other)
  Sender: FDA-Public Use
  Company Number: US-ASTRAZENECA-2018SE63089

PATIENT
  Age: 23055 Day
  Sex: Female
  Weight: 104.3 kg

DRUGS (45)
  1. PANTOPRAZOLE [Suspect]
     Active Substance: PANTOPRAZOLE
     Dosage: GENERIC
     Route: 065
  2. ADVAIR HFA [Concomitant]
     Active Substance: FLUTICASONE PROPIONATE\SALMETEROL XINAFOATE
     Indication: PNEUMONIA
     Route: 065
  3. HYDROCHLOROTHIAZIDE. [Concomitant]
     Active Substance: HYDROCHLOROTHIAZIDE
     Route: 065
  4. COZAAR [Concomitant]
     Active Substance: LOSARTAN POTASSIUM
     Dosage: 50.0MG ONCE/SINGLE ADMINISTRATION
     Route: 065
  5. GLIPIZIDE. [Concomitant]
     Active Substance: GLIPIZIDE
     Route: 065
     Dates: start: 20150109
  6. CIPROFLOXACIN. [Concomitant]
     Active Substance: CIPROFLOXACIN
  7. PRILOSEC OTC [Suspect]
     Active Substance: OMEPRAZOLE MAGNESIUM
     Indication: ULCER
     Route: 048
     Dates: start: 2014
  8. PRILOSEC OTC [Suspect]
     Active Substance: OMEPRAZOLE MAGNESIUM
     Indication: ULCER
     Dosage: TAKE 1 TABLET BY MOUTH ONCE A DAY
     Route: 048
     Dates: start: 20141006
  9. MULTAQ [Concomitant]
     Active Substance: DRONEDARONE
     Route: 065
     Dates: start: 20150109
  10. LORAZEPAM. [Concomitant]
     Active Substance: LORAZEPAM
  11. TRIUPIX [Concomitant]
  12. INDOMETHACIN. [Concomitant]
     Active Substance: INDOMETHACIN
  13. MELOXICAM. [Concomitant]
     Active Substance: MELOXICAM
  14. GABAPENTIN. [Concomitant]
     Active Substance: GABAPENTIN
  15. NEXIUM [Suspect]
     Active Substance: ESOMEPRAZOLE MAGNESIUM
     Indication: ULCER
     Route: 048
     Dates: start: 2009, end: 2010
  16. TRIAMTERENE. [Concomitant]
     Active Substance: TRIAMTERENE
     Route: 065
  17. CHANTIX [Concomitant]
     Active Substance: VARENICLINE TARTRATE
     Indication: SMOKING CESSATION THERAPY
     Dosage: 1.0MG ONCE/SINGLE ADMINISTRATION
     Route: 065
  18. TAGAMET [Concomitant]
     Active Substance: CIMETIDINE
     Route: 065
  19. FUROSEMIDE. [Concomitant]
     Active Substance: FUROSEMIDE
     Route: 065
     Dates: start: 20160421
  20. FISH OIL [Concomitant]
     Active Substance: FISH OIL
     Route: 065
     Dates: start: 20150109
  21. AMIODARONE [Concomitant]
     Active Substance: AMIODARONE
     Dosage: 200.0MG ONCE/SINGLE ADMINISTRATION
     Route: 065
     Dates: start: 20150310
  22. METFORMIN [Concomitant]
     Active Substance: METFORMIN HYDROCHLORIDE
  23. NEXIUM [Suspect]
     Active Substance: ESOMEPRAZOLE MAGNESIUM
     Indication: ULCER
     Route: 048
     Dates: start: 1990, end: 2015
  24. PANTOPRAZOLE [Suspect]
     Active Substance: PANTOPRAZOLE
     Dosage: GENERIC
     Route: 048
     Dates: start: 20150826
  25. PLAVIX [Concomitant]
     Active Substance: CLOPIDOGREL BISULFATE
     Indication: CARDIAC DISORDER
     Dosage: 75.0MG ONCE/SINGLE ADMINISTRATION
     Route: 065
     Dates: start: 20150109
  26. LIPITOR [Concomitant]
     Active Substance: ATORVASTATIN CALCIUM
     Route: 065
  27. ZANTAC [Concomitant]
     Active Substance: RANITIDINE HYDROCHLORIDE
     Route: 065
  28. DISKUS [Concomitant]
     Dosage: 1 PUFF TWICW A DAY
     Route: 065
     Dates: start: 20150109
  29. PRILOSEC [Suspect]
     Active Substance: OMEPRAZOLE MAGNESIUM
     Indication: ULCER
     Route: 048
     Dates: start: 2014
  30. IBUPROFEN. [Concomitant]
     Active Substance: IBUPROFEN
  31. NEXIUM [Suspect]
     Active Substance: ESOMEPRAZOLE MAGNESIUM
     Indication: ULCER
     Route: 048
     Dates: start: 20091102
  32. PREVACID [Suspect]
     Active Substance: LANSOPRAZOLE
     Indication: ULCER
     Route: 065
  33. CEPHALEXIN. [Concomitant]
     Active Substance: CEPHALEXIN
     Route: 065
  34. CARVEDILOL. [Concomitant]
     Active Substance: CARVEDILOL
     Dosage: 1 TABLET WITH FOOD TWICE A DAY
     Route: 065
     Dates: start: 20150109
  35. PEPCID [Concomitant]
     Active Substance: FAMOTIDINE
     Route: 065
  36. PRILOSEC OTC [Suspect]
     Active Substance: OMEPRAZOLE MAGNESIUM
     Indication: ULCER
     Route: 048
     Dates: start: 1990, end: 2015
  37. SPIRIVA [Concomitant]
     Active Substance: TIOTROPIUM BROMIDE MONOHYDRATE
     Indication: PNEUMONIA
     Dosage: 18 MCG CAPSULE 1 CAPSULE ONCE A DAY
     Route: 065
  38. ALLOPURINOL. [Concomitant]
     Active Substance: ALLOPURINOL
  39. DIAZEPAM. [Concomitant]
     Active Substance: DIAZEPAM
  40. SULFAMETHOXAZOLE-TRIMETHOPRIM [Concomitant]
     Active Substance: SULFAMETHOXAZOLE\TRIMETHOPRIM
  41. ASPIRIN. [Concomitant]
     Active Substance: ASPIRIN
     Indication: ANTICOAGULANT THERAPY
     Route: 065
     Dates: start: 20150109
  42. OMEGA 3 FISH OIL [Concomitant]
     Active Substance: FISH OIL\OMEGA-3 FATTY ACIDS
     Indication: ROUTINE HEALTH MAINTENANCE
     Route: 065
  43. ACETAMINOPHEN. [Concomitant]
     Active Substance: ACETAMINOPHEN
     Indication: PAIN
     Route: 065
  44. NAPROXEN. [Concomitant]
     Active Substance: NAPROXEN
  45. LISINOPRIL. [Concomitant]
     Active Substance: LISINOPRIL

REACTIONS (4)
  - Chronic obstructive pulmonary disease [Fatal]
  - Chronic kidney disease [Unknown]
  - Acute kidney injury [Unknown]
  - Renal failure [Unknown]

NARRATIVE: CASE EVENT DATE: 20150122
